FAERS Safety Report 6715208-X (Version None)
Quarter: 2010Q2

REPORT INFORMATION
  Report Type: 
  Country: None (occurrence: None)
  Receive Date: 20100507
  Receipt Date: 20100428
  Transmission Date: 20101027
  Serious: Yes (Other)
  Sender: FDA-Public Use
  Company Number: IT-BRISTOL-MYERS SQUIBB COMPANY-15085699

PATIENT
  Age: 64 Year
  Sex: Male

DRUGS (1)
  1. SPRYCEL [Suspect]
     Dosage: FILM COATED TABS  INTERRUPTED FROM 20MAY08-06JUN08 RESTARTED WITH HALF OF THE DOSE(50MG/D).
     Route: 048
     Dates: start: 20080410, end: 20081024

REACTIONS (2)
  - TOOTH DISORDER [None]
  - TOOTH LOSS [None]
